FAERS Safety Report 8362172-6 (Version None)
Quarter: 2012Q2

REPORT INFORMATION
  Report Type: 
  Country: None (occurrence: None)
  Receive Date: 20120515
  Receipt Date: 20120509
  Transmission Date: 20120825
  Serious: Yes (Other)
  Sender: FDA-Public Use
  Company Number: PHHY2012US039550

PATIENT
  Age: 51 Year
  Sex: Male

DRUGS (1)
  1. LISINOPRIL AND HYDROCHLOROTHIAZIDE [Suspect]

REACTIONS (10)
  - LYMPHOCYTE MORPHOLOGY ABNORMAL [None]
  - PAIN OF SKIN [None]
  - LYMPHADENOPATHY [None]
  - SKIN FISSURES [None]
  - PRURITUS [None]
  - PSEUDOLYMPHOMA [None]
  - DRUG ERUPTION [None]
  - SKIN EXFOLIATION [None]
  - HYPERKERATOSIS [None]
  - RASH [None]
